FAERS Safety Report 6143724-0 (Version None)
Quarter: 2009Q2

REPORT INFORMATION
  Report Type: 
  Country: None (occurrence: None)
  Receive Date: 20090403
  Receipt Date: 20090320
  Transmission Date: 20091009
  Serious: Yes (Other)
  Sender: FDA-Public Use
  Company Number: JO-GENENTECH-280019

PATIENT

DRUGS (5)
  1. RITUXIMAB [Suspect]
     Indication: LYMPHOMA
     Dosage: 5 UNK, UNK
  2. CYCLOPHOSPHAMIDE [Suspect]
     Indication: LYMPHOMA
  3. VINCRISTINE [Suspect]
     Indication: LYMPHOMA
  4. PREDNISONE [Suspect]
     Indication: LYMPHOMA
  5. NEUPOGEN [Suspect]
     Indication: PROPHYLAXIS
     Dosage: 5 A?G/KG, QD

REACTIONS (1)
  - FEBRILE NEUTROPENIA [None]
